FAERS Safety Report 13534222 (Version 1)
Quarter: 2017Q2

REPORT INFORMATION
  Report Type: Spontaneous
  Country: US (occurrence: US)
  Receive Date: 20170510
  Receipt Date: 20170510
  Transmission Date: 20170830
  Serious: No
  Sender: FDA-Public Use
  Company Number: US-SPEAR PHARMACEUTICALS-2020555

PATIENT
  Age: 88 Year
  Sex: Male
  Weight: 83.18 kg

DRUGS (7)
  1. FLUOROURACIL. [Suspect]
     Active Substance: FLUOROURACIL
     Indication: ACTINIC KERATOSIS
     Route: 061
     Dates: start: 20170310, end: 20170312
  2. 81 MG LOW DOSE ASPIRIN [Concomitant]
     Active Substance: ASPIRIN
  3. PRAVASTATIN. [Concomitant]
     Active Substance: PRAVASTATIN
  4. PROSTATE PLUS [Concomitant]
  5. FINASTERIDE. [Concomitant]
     Active Substance: FINASTERIDE
  6. BENZAPRIL COQ10 [Concomitant]
  7. PRESSER VISION [Concomitant]

REACTIONS (3)
  - Application site reaction [Recovered/Resolved]
  - Urticaria [None]
  - Application site rash [None]

NARRATIVE: CASE EVENT DATE: 20170312
